FAERS Safety Report 24555879 (Version 2)
Quarter: 2024Q4

REPORT INFORMATION
  Report Type: Spontaneous
  Country: GB (occurrence: GB)
  Receive Date: 20241028
  Receipt Date: 20241112
  Transmission Date: 20250115
  Serious: Yes (Death)
  Sender: PFIZER
  Company Number: GB-PFIZER INC-PV202400139340

PATIENT
  Age: 80 Year
  Sex: Female

DRUGS (1)
  1. XELJANZ [Suspect]
     Active Substance: TOFACITINIB CITRATE
     Indication: Colitis ulcerative
     Dosage: 5 MG

REACTIONS (1)
  - Death [Fatal]

NARRATIVE: CASE EVENT DATE: 20240504
